FAERS Safety Report 14926738 (Version 1)
Quarter: 2018Q2

REPORT INFORMATION
  Report Type: Spontaneous
  Country: US (occurrence: US)
  Receive Date: 20180523
  Receipt Date: 20180523
  Transmission Date: 20180711
  Serious: No
  Sender: FDA-Public Use
  Company Number: US-GLENMARK PHARMACEUTICALS-2018GMK034026

PATIENT

DRUGS (2)
  1. TRIAMCINOLONE ACETONIDE CREAM USP [Suspect]
     Active Substance: TRIAMCINOLONE ACETONIDE
     Indication: SKIN ULCER
     Dosage: UNK UNK, OD (BEFORE BEDTIME)
     Route: 061
     Dates: start: 201801
  2. TRIAMCINOLONE ACETONIDE CREAM USP [Suspect]
     Active Substance: TRIAMCINOLONE ACETONIDE
     Indication: PRURITUS

REACTIONS (5)
  - Product physical consistency issue [Unknown]
  - Product quality issue [Unknown]
  - Product use in unapproved indication [Unknown]
  - Poor quality drug administered [Unknown]
  - No adverse event [Unknown]
